FAERS Safety Report 25132213 (Version 2)
Quarter: 2025Q2

REPORT INFORMATION
  Report Type: Spontaneous
  Country: US (occurrence: US)
  Receive Date: 20250328
  Receipt Date: 20250403
  Transmission Date: 20250717
  Serious: Yes (Life-Threatening, Hospitalization, Other)
  Sender: ACCORD
  Company Number: US-Accord-475713

PATIENT
  Age: 36 Year
  Sex: Male

DRUGS (9)
  1. ETOPOSIDE [Suspect]
     Active Substance: ETOPOSIDE
     Indication: Testicular seminoma (pure) stage III
     Route: 042
  2. CISPLATIN [Concomitant]
     Active Substance: CISPLATIN
     Indication: Testicular seminoma (pure) stage III
  3. MANNITOL [Concomitant]
     Active Substance: MANNITOL
     Indication: Testicular seminoma (pure) stage III
  4. BLEOMYCIN [Concomitant]
     Active Substance: BLEOMYCIN SULFATE
     Indication: Testicular seminoma (pure) stage III
  5. APIXABAN [Concomitant]
     Active Substance: APIXABAN
     Indication: Deep vein thrombosis
  6. ETOPOSIDE [Suspect]
     Active Substance: ETOPOSIDE
     Indication: Metastases to lung
     Route: 042
  7. CISPLATIN [Concomitant]
     Active Substance: CISPLATIN
     Indication: Metastases to lung
  8. MANNITOL [Concomitant]
     Active Substance: MANNITOL
     Indication: Metastases to lung
  9. BLEOMYCIN [Concomitant]
     Active Substance: BLEOMYCIN SULFATE
     Indication: Metastases to lung

REACTIONS (2)
  - Respiratory failure [Unknown]
  - Pneumonitis [Recovering/Resolving]
